FAERS Safety Report 17470780 (Version 2)
Quarter: 2020Q1

REPORT INFORMATION
  Report Type: Spontaneous
  Country: GB (occurrence: GB)
  Receive Date: 20200228
  Receipt Date: 20200304
  Transmission Date: 20200409
  Serious: Yes (Other)
  Sender: FDA-Public Use
  Company Number: GB-TEVA-2020-GB-1192176

PATIENT
  Age: 78 Year
  Sex: Female
  Weight: 90 kg

DRUGS (12)
  1. DOXAZOSIN [Suspect]
     Active Substance: DOXAZOSIN MESYLATE
     Dosage: 4 MILLIGRAM
     Dates: start: 20200128
  2. DEXCEL-PHARMA OMEPRAZOLE [Concomitant]
     Active Substance: OMEPRAZOLE
     Dosage: 1 DOSAGE FORM
     Dates: start: 20181231
  3. BENDROFLUMETHIAZIDE [Concomitant]
     Active Substance: BENDROFLUMETHIAZIDE
     Dosage: 1 DOSAGE FORMS DAILY; TAKE EACH MORNING
     Dates: start: 20200203
  4. FOSTAIR [Concomitant]
     Active Substance: BECLOMETHASONE\FORMOTEROL
     Dosage: 4 DOSAGE FORM, PUFFS
     Dates: start: 20190522
  5. DOXYCYCLINE. [Concomitant]
     Active Substance: DOXYCYCLINE
     Dosage: TAKE TWO ON FIRST DAY, THEN ONE EACH DAY
     Dates: start: 20191224, end: 20191231
  6. LOSARTAN. [Concomitant]
     Active Substance: LOSARTAN
     Dosage: 1 DOSAGE FORM
     Dates: start: 20181231
  7. PREDNISOLONE. [Concomitant]
     Active Substance: PREDNISOLONE
     Dosage: 6 DOSAGE FORMS DAILY; TAKE EVERY MORNING
     Dates: start: 20191224, end: 20191231
  8. LEVOTHYROXINE. [Concomitant]
     Active Substance: LEVOTHYROXINE
     Dosage: 1 DOSAGE FORM
     Dates: start: 20181231
  9. HYPROMELLOSE [Concomitant]
     Active Substance: HYPROMELLOSES
     Dosage: 1 GTT
     Dates: start: 20181231
  10. YALTORMIN SR [Concomitant]
     Dosage: 2 DOSAGE FORM, TAKE WITH FOOD
     Dates: start: 20190109
  11. FENBID [Concomitant]
     Active Substance: IBUPROFEN
     Dosage: 3 DOSAGE FORM, RUB INTO THE AFFECTED AREA FO...
     Dates: start: 20190225
  12. VENTOLIN [Concomitant]
     Active Substance: ALBUTEROL SULFATE
     Dosage: 8 DOSAGE FORMS DAILY; PUFFS, FOUR TIMES A DAY
     Dates: start: 20190130

REACTIONS (9)
  - Dyspnoea [Unknown]
  - Feeling abnormal [Unknown]
  - Chest discomfort [Recovered/Resolved]
  - Nausea [Recovered/Resolved]
  - Confusional state [Recovered/Resolved]
  - Vision blurred [Unknown]
  - Fatigue [Unknown]
  - Cognitive disorder [Unknown]
  - Vomiting [Unknown]

NARRATIVE: CASE EVENT DATE: 20200128
